FAERS Safety Report 11325159 (Version 1)
Quarter: 2015Q3

REPORT INFORMATION
  Report Type: Report from Study
  Country: KR (occurrence: KR)
  Receive Date: 20150730
  Receipt Date: 20150730
  Transmission Date: 20151125
  Serious: Yes (Hospitalization, Other)
  Sender: FDA-Public Use
  Company Number: KR-GILEAD-2015-0164932

PATIENT
  Age: 46 Year
  Sex: Male
  Weight: 51 kg

DRUGS (70)
  1. ULCERMIN                           /00434701/ [Concomitant]
     Dosage: UNK
     Dates: start: 20140721, end: 20140819
  2. ROWATINEX [Concomitant]
     Active Substance: HERBALS
     Dosage: UNK
     Dates: start: 20141119, end: 20141120
  3. SOMALGEN [Concomitant]
     Dosage: UNK
     Dates: start: 20141119, end: 20141120
  4. PHENIRAMIN [Concomitant]
     Dosage: UNK
     Dates: start: 20141124, end: 20141128
  5. OMNICEF                            /00497602/ [Concomitant]
     Dosage: UNK
     Dates: start: 20141124, end: 20141128
  6. OMNICEF                            /00497602/ [Concomitant]
     Dosage: UNK
     Dates: start: 20150123, end: 20150130
  7. SOLONDO [Concomitant]
     Active Substance: PREDNISOLONE
     Dosage: 5 MG, UNK
     Dates: start: 20140707, end: 20150112
  8. VITAMINS WITH MINERALS [Concomitant]
     Active Substance: MINERALS\VITAMINS
     Dosage: UNK
     Dates: start: 20140322, end: 20140329
  9. FURIX [Concomitant]
     Active Substance: FUROSEMIDE
     Dosage: 40 MG, UNK
     Dates: start: 20140316, end: 20140329
  10. NORMAL SALINE [Concomitant]
     Active Substance: SODIUM CHLORIDE
     Dosage: UNK
     Dates: start: 20141119, end: 20141119
  11. SOLCOSERYL [Concomitant]
     Active Substance: SOLCOSERYL
     Dosage: UNK
     Dates: start: 20140906, end: 20140920
  12. PACETIN [Concomitant]
     Dosage: UNK
     Dates: start: 20140320, end: 20140327
  13. DEXTROSE WATER [Concomitant]
     Dosage: 5 UNK, UNK
     Dates: start: 20140326, end: 20140326
  14. ULCERMIN                           /00434701/ [Concomitant]
     Dosage: UNK
     Dates: start: 20140912, end: 20141011
  15. BISOLVON [Concomitant]
     Active Substance: BROMHEXINE HYDROCHLORIDE
     Dosage: UNK
     Dates: start: 20141124, end: 20141128
  16. NORMAL SALINE [Concomitant]
     Active Substance: SODIUM CHLORIDE
     Dosage: UNK
     Dates: start: 20140324, end: 20140324
  17. ULCERMIN                           /00434701/ [Concomitant]
     Dosage: UNK
     Dates: start: 20150313, end: 20150323
  18. ULCERMIN                           /00434701/ [Concomitant]
     Dosage: UNK
  19. TAMIPOOL [Concomitant]
     Active Substance: VITAMINS
     Dosage: UNK
     Dates: start: 20140320, end: 20140323
  20. DEXTROSE WATER [Concomitant]
     Dosage: 50 %, UNK
  21. DEXTROSE WATER [Concomitant]
     Dosage: UNK
     Dates: start: 20140514
  22. KETORAC [Concomitant]
     Dosage: UNK
     Dates: start: 20141119, end: 20141119
  23. ASPIRIN. [Concomitant]
     Active Substance: ASPIRIN
     Dosage: 100 MG, UNK
     Dates: start: 20140422
  24. URSA [Concomitant]
     Dosage: 100 MG, UNK
     Dates: start: 20140311, end: 20140329
  25. ZIPAN                              /00033002/ [Concomitant]
     Dosage: UNK
     Dates: start: 20140326, end: 20140326
  26. CALCORT [Concomitant]
     Active Substance: DEFLAZACORT
     Dosage: UNK
     Dates: start: 20150112
  27. TACROBELL [Concomitant]
     Active Substance: TACROLIMUS
     Dosage: 1 MG, UNK
     Dates: start: 20150112
  28. SEPTRIN [Concomitant]
     Active Substance: SULFAMETHOXAZOLE\TRIMETHOPRIM
     Dosage: 480 UNKNOWN, UNK
     Dates: start: 20140508, end: 20150413
  29. NORMAL SALINE [Concomitant]
     Active Substance: SODIUM CHLORIDE
     Dosage: UNK
     Dates: start: 20140326, end: 20140328
  30. TIROPA [Concomitant]
     Active Substance: TIROPRAMIDE
     Dosage: UNK
     Dates: start: 20141119, end: 20141119
  31. NOREPINEPHRINE [Concomitant]
     Active Substance: NOREPINEPHRINE\NOREPINEPHRINE BITARTRATE
     Dosage: UNK
     Dates: start: 20140329, end: 20140330
  32. SODIUM BICARBONATE. [Concomitant]
     Active Substance: SODIUM BICARBONATE
     Dosage: 8.4 %, UNK
     Dates: start: 20140329, end: 20140330
  33. NEO-MINOPHAGEN C [Concomitant]
     Active Substance: AMMONIUM GLYCYRRHIZATE
     Dosage: UNK
     Dates: start: 20140329, end: 20140329
  34. TENOFOVIR DISOPROXIL FUMARATE. [Suspect]
     Active Substance: TENOFOVIR DISOPROXIL FUMARATE
     Indication: PRODUCT USED FOR UNKNOWN INDICATION
     Dosage: 300 MG, UNK
     Route: 048
     Dates: start: 20140319, end: 20140329
  35. TENOFOVIR DISOPROXIL FUMARATE. [Suspect]
     Active Substance: TENOFOVIR DISOPROXIL FUMARATE
     Dosage: 300 MG, UNK
     Route: 048
     Dates: start: 20140707
  36. ALDACTONE [Concomitant]
     Active Substance: SPIRONOLACTONE
     Dosage: 25 MG, UNK
     Dates: start: 20140316, end: 20140323
  37. WARFARIN SODIUM. [Concomitant]
     Active Substance: WARFARIN SODIUM
     Dosage: UNK
     Dates: start: 20140326, end: 20140327
  38. NORMAL SALINE [Concomitant]
     Active Substance: SODIUM CHLORIDE
     Dosage: UNK
     Dates: start: 20140329, end: 20140402
  39. ULCERMIN                           /00434701/ [Concomitant]
     Dosage: UNK
     Dates: start: 20141114, end: 20141213
  40. NEWLANSO [Concomitant]
     Dosage: UNK
     Dates: start: 20141119, end: 20141120
  41. PHENIRAMIN [Concomitant]
     Dosage: UNK
     Dates: start: 20140329, end: 20140402
  42. ASPIRIN                            /00002701/ [Concomitant]
     Active Substance: ASPIRIN
     Dosage: UNK
     Dates: start: 20140325, end: 20140329
  43. MYPOL [Concomitant]
     Dosage: UNK
     Dates: start: 20140325, end: 20140327
  44. REBAMIPIDE [Concomitant]
     Active Substance: REBAMIPIDE
     Dosage: UNK
     Dates: start: 20140325, end: 20140327
  45. CHLORPHENESIN CARBAMATE [Concomitant]
     Active Substance: CHLORPHENESIN CARBAMATE
     Dosage: UNK
     Dates: start: 20140325, end: 20140329
  46. KETOPROFEN. [Concomitant]
     Active Substance: KETOPROFEN
     Dosage: UNK
     Dates: start: 20140325, end: 20140326
  47. ZIPAN                              /00033002/ [Concomitant]
     Dosage: UNK
     Dates: start: 20140324, end: 20140324
  48. ALBUMIN [Concomitant]
     Active Substance: ALBUMIN (HUMAN)
     Dosage: 20 %, UNK
     Dates: start: 20140329, end: 20140402
  49. VOLUVEN [Concomitant]
     Active Substance: HYDROXYETHYL STARCH 130/0.4
     Dosage: 6 %, UNK
     Dates: start: 20140329, end: 20140329
  50. CELLCEPT [Concomitant]
     Active Substance: MYCOPHENOLATE MOFETIL\MYCOPHENOLATE MOFETIL HYDROCHLORIDE
     Dosage: UNK
     Dates: start: 20140507
  51. DICAMAX [Concomitant]
     Dosage: UNK
     Dates: start: 20150413
  52. ULCERMIN                           /00434701/ [Concomitant]
     Dosage: UNK
     Dates: start: 20150112, end: 20150211
  53. ROWACHOL                           /06253701/ [Concomitant]
     Dosage: UNK
     Dates: start: 20140318, end: 20140329
  54. INSULIN LISPRO [Concomitant]
     Active Substance: INSULIN LISPRO
     Dosage: UNK
     Dates: start: 20140327, end: 20140329
  55. NORMAL SALINE [Concomitant]
     Active Substance: SODIUM CHLORIDE
     Dosage: UNK
     Dates: start: 20141119, end: 20141119
  56. FLOSPAN [Concomitant]
     Dosage: UNK
     Dates: start: 20141119, end: 20141120
  57. FURTMAN [Concomitant]
     Dosage: UNK
     Dates: start: 20140320, end: 20140323
  58. POLYSTYRENE SULFONATE CALCIUM [Concomitant]
     Active Substance: CALCIUM POLYSTYRENE SULFONATE
     Dosage: UNK
     Dates: start: 20140326, end: 20140326
  59. FOSAMAX [Concomitant]
     Active Substance: ALENDRONATE SODIUM
     Dosage: 70 MG, Q1WK
     Dates: start: 20150413
  60. TACROBELL [Concomitant]
     Active Substance: TACROLIMUS
     Dosage: 1 MG, UNK
     Dates: start: 20150112
  61. NYSTATIN. [Concomitant]
     Active Substance: NYSTATIN
     Dosage: UNK
     Dates: start: 20140416, end: 20150413
  62. SUSPEN                             /00001802/ [Concomitant]
     Dosage: UNK
     Dates: start: 20150123, end: 20150130
  63. CENTRUM SILVER                     /02363801/ [Concomitant]
     Active Substance: VITAMINS
     Dosage: UNK
     Dates: start: 20140319, end: 20140321
  64. FINIBAX [Concomitant]
     Active Substance: DORIPENEM MONOHYDRATE
     Dosage: UNK
     Dates: start: 20140329, end: 20140423
  65. NORMAL SALINE [Concomitant]
     Active Substance: SODIUM CHLORIDE
     Dosage: UNK
     Dates: start: 20140322, end: 20140322
  66. NORMAL SALINE [Concomitant]
     Active Substance: SODIUM CHLORIDE
     Dosage: UNK
     Dates: start: 20140326, end: 20140326
  67. NORMAL SALINE [Concomitant]
     Active Substance: SODIUM CHLORIDE
     Dosage: UNK
     Dates: start: 20140329, end: 20140330
  68. PHENIRAMIN [Concomitant]
     Dosage: UNK
     Dates: start: 20150123, end: 20150130
  69. POLYSTYRENE SULFONATE CALCIUM [Concomitant]
     Active Substance: CALCIUM POLYSTYRENE SULFONATE
     Dosage: UNK
     Dates: start: 20140329, end: 20140329
  70. LASIX [Concomitant]
     Active Substance: FUROSEMIDE
     Dosage: UNK
     Dates: start: 20140329, end: 20140330

REACTIONS (3)
  - Calculus ureteric [Recovered/Resolved]
  - Nasopharyngitis [Recovered/Resolved]
  - Hepatic failure [Recovered/Resolved]

NARRATIVE: CASE EVENT DATE: 20140329
